FAERS Safety Report 24623305 (Version 1)
Quarter: 2024Q4

REPORT INFORMATION
  Report Type: Spontaneous
  Country: JP (occurrence: JP)
  Receive Date: 20241115
  Receipt Date: 20241115
  Transmission Date: 20250114
  Serious: Yes (Hospitalization, Other)
  Sender: RECORDATI
  Company Number: JP-ORPHANEU-2024008925

PATIENT

DRUGS (5)
  1. CARGLUMIC ACID [Suspect]
     Active Substance: CARGLUMIC ACID
     Indication: Hyperammonaemia
     Dosage: UNK
     Route: 065
  2. CARGLUMIC ACID [Suspect]
     Active Substance: CARGLUMIC ACID
     Indication: Ornithine transcarbamoylase deficiency
  3. CARGLUMIC ACID [Suspect]
     Active Substance: CARGLUMIC ACID
     Indication: Off label use
  4. ARGININE [Concomitant]
     Active Substance: ARGININE
     Indication: Hyperammonaemia
  5. ARGININE [Concomitant]
     Active Substance: ARGININE
     Indication: Ornithine transcarbamoylase deficiency

REACTIONS (2)
  - Hyperammonaemic crisis [Recovering/Resolving]
  - Off label use [Recovered/Resolved]
